FAERS Safety Report 17762701 (Version 2)
Quarter: 2020Q2

REPORT INFORMATION
  Report Type: Report from Study
  Country: US (occurrence: US)
  Receive Date: 20200508
  Receipt Date: 20200611
  Transmission Date: 20200714
  Serious: Yes (Death)
  Sender: FDA-Public Use
  Company Number: US-TAIHO ONCOLOGY  INC-EU-2020-01546

PATIENT
  Age: 69 Year
  Sex: Male

DRUGS (3)
  1. LONSURF [Suspect]
     Active Substance: TIPIRACIL HYDROCHLORIDE\TRIFLURIDINE
     Indication: GASTROINTESTINAL CARCINOMA
     Dosage: CYCLE UNKNOWN
     Route: 048
     Dates: start: 20200410, end: 20200430
  2. ATIVAN [Concomitant]
     Active Substance: LORAZEPAM
     Dosage: PRN
  3. MORPHINE SULFATE. [Concomitant]
     Active Substance: MORPHINE SULFATE
     Dosage: IMMEDIATE RELEASE

REACTIONS (3)
  - Prescribed underdose [Unknown]
  - Disease progression [Unknown]
  - Respiratory failure [Fatal]

NARRATIVE: CASE EVENT DATE: 20200408
